FAERS Safety Report 17087251 (Version 1)
Quarter: 2019Q4

REPORT INFORMATION
  Report Type: Spontaneous
  Country: HR (occurrence: HR)
  Receive Date: 20191128
  Receipt Date: 20191128
  Transmission Date: 20200122
  Serious: Yes (Other)
  Sender: FDA-Public Use
  Company Number: HR-TEVA-2019-HR-1141787

PATIENT
  Sex: Male

DRUGS (5)
  1. PHYSIOTENS [Suspect]
     Active Substance: MOXONIDINE
     Route: 048
     Dates: start: 201908, end: 201908
  2. NORMABEL [Suspect]
     Active Substance: DIAZEPAM
     Route: 048
     Dates: start: 201908, end: 201908
  3. ELICEA [Suspect]
     Active Substance: ESCITALOPRAM OXALATE
     Dosage: ADDITIONAL INFO: ADR ADEQUATELY LABELLED: SOMNOLENCEXADR NOT ADEQUATELY LABELLED: RESPIRATORY FAILUR
     Route: 048
     Dates: start: 201908, end: 201908
  4. PANTOPRAZOL [Suspect]
     Active Substance: PANTOPRAZOLE SODIUM
     Dosage: UNSPECIFIED
     Route: 048
     Dates: start: 201908, end: 201908
  5. FURSEMID [Suspect]
     Active Substance: FUROSEMIDE
     Route: 048
     Dates: start: 201908, end: 201908

REACTIONS (3)
  - Respiratory failure [Unknown]
  - Somnolence [Unknown]
  - Overdose [Unknown]

NARRATIVE: CASE EVENT DATE: 201908
